FAERS Safety Report 8910919 (Version 1)
Quarter: 2012Q4

REPORT INFORMATION
  Report Type: 
  Country: US (occurrence: US)
  Receive Date: 20121116
  Receipt Date: 20121116
  Transmission Date: 20130627
  Serious: No
  Sender: FDA-Public Use
  Company Number: US-009507513-1211USA004375

PATIENT
  Age: 25 Year
  Sex: Female

DRUGS (1)
  1. NUVARING [Suspect]
     Indication: CONTRACEPTION
     Dosage: 1 ring 3 weeks / followed 1 week free break
     Route: 067
     Dates: start: 201210

REACTIONS (3)
  - Food craving [Unknown]
  - Metrorrhagia [Unknown]
  - Muscle spasms [Unknown]
